FAERS Safety Report 9918249 (Version 1)
Quarter: 2014Q1

REPORT INFORMATION
  Report Type: Report from Study
  Country: US (occurrence: US)
  Receive Date: 20140224
  Receipt Date: 20140224
  Transmission Date: 20141002
  Serious: Yes (Hospitalization, Other)
  Sender: FDA-Public Use
  Company Number: US-ROCHE-1332804

PATIENT
  Age: 84 Year
  Sex: Female

DRUGS (10)
  1. LUCENTIS [Suspect]
     Indication: AGE-RELATED MACULAR DEGENERATION
     Route: 050
     Dates: start: 20090722
  2. AVASTIN [Suspect]
     Indication: AGE-RELATED MACULAR DEGENERATION
     Route: 065
     Dates: start: 20101006
  3. AMLODIPINE [Concomitant]
  4. ATACAND [Concomitant]
  5. CLONIDINE [Concomitant]
  6. COUMADIN [Concomitant]
  7. FOSINOPRIL [Concomitant]
  8. TETRACAINE [Concomitant]
  9. TOBREX [Concomitant]
  10. BETADINE [Concomitant]
     Route: 065

REACTIONS (7)
  - Hip fracture [Unknown]
  - Cystoid macular oedema [Unknown]
  - Cataract [Unknown]
  - Retinal haemorrhage [Unknown]
  - Macular fibrosis [Unknown]
  - Retinal scar [Unknown]
  - Macular degeneration [Unknown]
